FAERS Safety Report 12737834 (Version 1)
Quarter: 2016Q3

REPORT INFORMATION
  Report Type: Spontaneous
  Country: US (occurrence: US)
  Receive Date: 20160909
  Receipt Date: 20160909
  Transmission Date: 20161109
  Serious: Yes (Hospitalization)
  Sender: FDA-Public Use
  Company Number: None

PATIENT
  Age: 70 Year
  Sex: Female
  Weight: 60.3 kg

DRUGS (6)
  1. DEXAMETHASONE. [Suspect]
     Active Substance: DEXAMETHASONE
     Dates: end: 20160816
  2. VELCADE [Suspect]
     Active Substance: BORTEZOMIB
     Dates: end: 20160816
  3. OXYCODONE [Concomitant]
     Active Substance: OXYCODONE
  4. GABAPENTIN. [Concomitant]
     Active Substance: GABAPENTIN
  5. LENALIDOMIDE (CC-5013) [Suspect]
     Active Substance: LENALIDOMIDE
     Dates: end: 20160816
  6. OXYCONTIN [Concomitant]
     Active Substance: OXYCODONE HYDROCHLORIDE

REACTIONS (16)
  - Back pain [None]
  - Somnolence [None]
  - Urinary tract infection [None]
  - Hyponatraemia [None]
  - Pyrexia [None]
  - Metabolic acidosis [None]
  - Pneumonia [None]
  - Neutropenia [None]
  - Haemoglobin decreased [None]
  - Oxygen saturation decreased [None]
  - Pancytopenia [None]
  - Sepsis [None]
  - Lethargy [None]
  - Mental status changes [None]
  - Hyperglycaemia [None]
  - Confusional state [None]

NARRATIVE: CASE EVENT DATE: 20160813
